FAERS Safety Report 4506001-7 (Version None)
Quarter: 2004Q4

REPORT INFORMATION
  Report Type: 
  Country: None (occurrence: None)
  Receive Date: 20041119
  Receipt Date: 20041108
  Transmission Date: 20050328
  Serious: Yes (Hospitalization)
  Sender: FDA-Public Use
  Company Number: DE-JNJFOC-20041102744

PATIENT
  Age: 73 Year
  Sex: Female

DRUGS (4)
  1. RISPERDAL [Suspect]
     Route: 049
  2. JATROSOM N [Suspect]
     Route: 049
  3. TEGRETOL [Suspect]
     Indication: DRUG USE FOR UNKNOWN INDICATION
     Route: 049
  4. HYPNOREX [Concomitant]
     Route: 049

REACTIONS (6)
  - CEREBRAL HAEMORRHAGE [None]
  - CONGENITAL CEREBROVASCULAR ANOMALY [None]
  - EMBOLISM [None]
  - PANCYTOPENIA [None]
  - PNEUMONIA [None]
  - VASCULITIS [None]
